FAERS Safety Report 5189049-1 (Version None)
Quarter: 2006Q4

REPORT INFORMATION
  Report Type: 
  Country: None (occurrence: None)
  Receive Date: 20061221
  Receipt Date: 20060918
  Transmission Date: 20070319
  Serious: Yes (Other)
  Sender: FDA-Public Use
  Company Number: US-ELI_LILLY_AND_COMPANY-US200609004312

PATIENT
  Age: 78 Year
  Sex: Female

DRUGS (6)
  1. LORAZEPAM [Concomitant]
  2. CYMBALTA [Suspect]
     Indication: DEPRESSION
     Dosage: 60 MG, UNK
  3. CYMBALTA [Suspect]
     Dosage: 30 MG, UNK
     Dates: end: 20061125
  4. CYMBALTA [Suspect]
     Dosage: 30 MG, DAILY (1/D)
     Dates: start: 20060915
  5. PRINIVIL [Concomitant]
     Indication: BLOOD PRESSURE
  6. ATENOLOL [Concomitant]
     Indication: BLOOD PRESSURE

REACTIONS (16)
  - APHASIA [None]
  - BALANCE DISORDER [None]
  - BLINDNESS TRANSIENT [None]
  - DISTURBANCE IN ATTENTION [None]
  - DIZZINESS [None]
  - FEAR [None]
  - FEELING ABNORMAL [None]
  - GAIT DISTURBANCE [None]
  - HALLUCINATION [None]
  - HALLUCINATION, VISUAL [None]
  - INSOMNIA [None]
  - MALAISE [None]
  - MEMORY IMPAIRMENT [None]
  - NAUSEA [None]
  - VISION BLURRED [None]
  - VISUAL DISTURBANCE [None]
